FAERS Safety Report 18794665 (Version 1)
Quarter: 2021Q1

REPORT INFORMATION
  Report Type: Spontaneous
  Country: FR (occurrence: FR)
  Receive Date: 20210127
  Receipt Date: 20210127
  Transmission Date: 20210419
  Serious: Yes (Hospitalization)
  Sender: FDA-Public Use
  Company Number: FR-ROCHE-2757403

PATIENT
  Age: 16 Year
  Sex: Male
  Weight: 78 kg

DRUGS (2)
  1. ROACTEMRA [Suspect]
     Active Substance: TOCILIZUMAB
     Indication: INFLAMMATION
     Route: 058
     Dates: start: 20201217, end: 20201219
  2. KINERET [Suspect]
     Active Substance: ANAKINRA
     Indication: INFLAMMATION
     Route: 058
     Dates: start: 20201211, end: 20201217

REACTIONS (1)
  - Agranulocytosis [Recovered/Resolved]

NARRATIVE: CASE EVENT DATE: 20201230
